FAERS Safety Report 10336174 (Version 1)
Quarter: 2014Q3

REPORT INFORMATION
  Report Type: Spontaneous
  Country: US (occurrence: US)
  Receive Date: 20140723
  Receipt Date: 20140723
  Transmission Date: 20150326
  Serious: No
  Sender: FDA-Public Use
  Company Number: US-BRISTOL-MYERS SQUIBB COMPANY-19884857

PATIENT
  Age: 75 Year
  Sex: Female

DRUGS (9)
  1. ATENOLOL. [Concomitant]
     Active Substance: ATENOLOL
     Indication: BLOOD PRESSURE
  2. FISH OIL [Concomitant]
     Active Substance: FISH OIL
  3. WARFARIN SODIUM. [Suspect]
     Active Substance: WARFARIN SODIUM
  4. METHENAMINE [Concomitant]
     Active Substance: METHENAMINE
     Indication: PROPHYLAXIS URINARY TRACT INFECTION
  5. NIACIN. [Concomitant]
     Active Substance: NIACIN
  6. OCUVITE [Concomitant]
     Active Substance: VITAMINS
  7. FAMOTIDINE. [Concomitant]
     Active Substance: FAMOTIDINE
  8. OMEGA-3 ACIDS [Concomitant]
     Active Substance: OMEGA-3 FATTY ACIDS
  9. VITAMIN C [Concomitant]
     Active Substance: ASCORBIC ACID

REACTIONS (2)
  - Migraine [Unknown]
  - Gout [Unknown]
